FAERS Safety Report 5819832-8 (Version None)
Quarter: 2008Q3

REPORT INFORMATION
  Report Type: 
  Country: None (occurrence: None)
  Receive Date: 20080723
  Receipt Date: 20080716
  Transmission Date: 20090109
  Serious: Yes (Hospitalization, Other)
  Sender: FDA-Public Use
  Company Number: US-AMGEN-QUU290476

PATIENT
  Sex: Female
  Weight: 63.3 kg

DRUGS (7)
  1. ENBREL [Suspect]
     Indication: RHEUMATOID ARTHRITIS
     Dates: start: 20060101
  2. PREDNISONE TAB [Concomitant]
  3. ORAL CONTRACEPTIVE NOS [Concomitant]
     Route: 048
     Dates: start: 20070601, end: 20080301
  4. DARVOCET-N 100 [Concomitant]
  5. IBUPROFEN [Concomitant]
  6. METHOTREXATE SODIUM [Concomitant]
     Dates: start: 20020101
  7. IRON [Concomitant]

REACTIONS (8)
  - ANTIPHOSPHOLIPID ANTIBODIES [None]
  - ARTHROSCOPIC SURGERY [None]
  - CONVULSION [None]
  - HAEMOGLOBIN DECREASED [None]
  - MENORRHAGIA [None]
  - PULMONARY EMBOLISM [None]
  - TONGUE CANCER METASTATIC [None]
  - WEIGHT DECREASED [None]
